FAERS Safety Report 11773953 (Version 1)
Quarter: 2015Q4

REPORT INFORMATION
  Report Type: Spontaneous
  Country: US (occurrence: US)
  Receive Date: 20151124
  Receipt Date: 20151124
  Transmission Date: 20160304
  Serious: No
  Sender: FDA-Public Use
  Company Number: US-PERNIX THERAPEUTICS-2015PT000186

PATIENT

DRUGS (10)
  1. LYRICA [Suspect]
     Active Substance: PREGABALIN
     Indication: PAIN
     Dosage: 150 MG, TWICE DAILY
     Route: 048
     Dates: start: 201411
  2. MELOXICAM. [Concomitant]
     Active Substance: MELOXICAM
     Dosage: UNK
     Dates: end: 201508
  3. SALBUTAMOL [Concomitant]
     Active Substance: ALBUTEROL
     Indication: BRONCHITIS
     Dosage: UNK, AS NEEDED
  4. PHENERGAN WITH CODEINE             /00072201/ [Concomitant]
     Indication: BRONCHITIS
     Dosage: UNK, AS NEEDED
  5. OSCAL 250+D [Concomitant]
     Dosage: UNK
     Dates: end: 201508
  6. AMLODIPINE [Concomitant]
     Active Substance: AMLODIPINE BESYLATE
  7. HYDROCODONE BITARTRATE. [Suspect]
     Active Substance: HYDROCODONE BITARTRATE
     Indication: PAIN
     Dosage: 10 MG, EVERY 4 HOURS AS NEEDED FOR PAIN
     Route: 048
     Dates: start: 20140520
  8. FOSAMAX [Concomitant]
     Active Substance: ALENDRONATE SODIUM
     Dosage: UNK
     Dates: end: 201508
  9. LEVOTHYROXINE. [Concomitant]
     Active Substance: LEVOTHYROXINE
     Dosage: UNK
  10. THEOPHYLLINE [Concomitant]
     Active Substance: THEOPHYLLINE ANHYDROUS
     Dosage: UNK

REACTIONS (8)
  - Haemochromatosis [Not Recovered/Not Resolved]
  - Weight decreased [Recovered/Resolved]
  - Diabetes mellitus [Recovered/Resolved]
  - Polyp [Recovered/Resolved]
  - Gait disturbance [Recovered/Resolved]
  - Gastrointestinal inflammation [Recovered/Resolved]
  - Breast cancer [Recovered/Resolved]
  - Loss of consciousness [Recovered/Resolved]

NARRATIVE: CASE EVENT DATE: 20140717
